FAERS Safety Report 15798324 (Version 1)
Quarter: 2019Q1

REPORT INFORMATION
  Report Type: Report from Study
  Country: MK (occurrence: MK)
  Receive Date: 20190108
  Receipt Date: 20190108
  Transmission Date: 20190417
  Serious: Yes (Other)
  Sender: FDA-Public Use
  Company Number: MK-MYLANLABS-2019M1000389

PATIENT
  Age: 28 Year
  Sex: Male

DRUGS (3)
  1. LAMOTRIGINE. [Concomitant]
     Active Substance: LAMOTRIGINE
     Indication: EPILEPSY
     Dosage: UNK
     Route: 065
  2. LEVETIRACETAM. [Suspect]
     Active Substance: LEVETIRACETAM
     Indication: EPILEPSY
     Dosage: MAXIMUM DOSE OF 1000MG/DAY
     Route: 065
  3. VALPROIC ACID. [Concomitant]
     Active Substance: VALPROIC ACID
     Indication: EPILEPSY
     Route: 065

REACTIONS (3)
  - Epilepsy [Recovered/Resolved]
  - Seizure [Unknown]
  - Paradoxical drug reaction [Recovered/Resolved]
